FAERS Safety Report 20431956 (Version 1)
Quarter: 2022Q1

REPORT INFORMATION
  Report Type: Spontaneous
  Country: US (occurrence: US)
  Receive Date: 20220204
  Receipt Date: 20220204
  Transmission Date: 20220424
  Serious: No
  Sender: FDA-Public Use
  Company Number: US-009507513-2202USA000953

PATIENT
  Age: 84 Year
  Sex: Male

DRUGS (3)
  1. STROMECTOL [Suspect]
     Active Substance: IVERMECTIN
     Indication: COVID-19 treatment
     Dosage: ONCE PER DAY
     Route: 048
     Dates: start: 202108
  2. CHOLECALCIFEROL [Concomitant]
     Active Substance: CHOLECALCIFEROL
  3. ZINC [Concomitant]
     Active Substance: ZINC

REACTIONS (3)
  - Product prescribing issue [Unknown]
  - Drug effective for unapproved indication [Unknown]
  - No adverse event [Unknown]

NARRATIVE: CASE EVENT DATE: 20210801
